FAERS Safety Report 6484572-1 (Version None)
Quarter: 2009Q4

REPORT INFORMATION
  Report Type: 
  Country: None (occurrence: None)
  Receive Date: 20091209
  Receipt Date: 20090616
  Transmission Date: 20100525
  Serious: No
  Sender: FDA-Public Use
  Company Number: US-AMGEN-KDL349238

PATIENT
  Sex: Female
  Weight: 104.9 kg

DRUGS (7)
  1. ENBREL [Suspect]
     Indication: PSORIASIS
     Route: 058
     Dates: start: 20070101, end: 20090611
  2. ENBREL [Suspect]
     Indication: PSORIATIC ARTHROPATHY
  3. UNSPECIFIED CONTRACEPTIVE [Concomitant]
     Route: 048
     Dates: start: 20090317
  4. FLONASE [Concomitant]
     Dates: start: 20090428
  5. AMBIEN [Concomitant]
     Route: 048
     Dates: start: 20090313
  6. OMEPRAZOLE [Concomitant]
     Route: 048
  7. IBUPROFEN [Concomitant]

REACTIONS (7)
  - ANAEMIA [None]
  - BLOOD GLUCOSE INCREASED [None]
  - HEPATIC ENZYME INCREASED [None]
  - HEPATIC STEATOSIS [None]
  - INJECTION SITE HAEMORRHAGE [None]
  - INJECTION SITE PAIN [None]
  - PSORIASIS [None]
